FAERS Safety Report 7306263-7 (Version None)
Quarter: 2011Q1

REPORT INFORMATION
  Report Type: 
  Country: None (occurrence: None)
  Receive Date: 20110222
  Receipt Date: 20110209
  Transmission Date: 20110831
  Serious: Yes (Other)
  Sender: FDA-Public Use
  Company Number: PHHY2011NL05954

PATIENT
  Sex: Female

DRUGS (6)
  1. EPREX [Concomitant]
     Dosage: 30000 2X PER WEEK 1
  2. OXAZEPAM [Concomitant]
     Dosage: 10MG 2-3DD1 TABLET
  3. RIVOTRIL [Concomitant]
     Dosage: 0.5 MG 1DD1
  4. EXJADE [Suspect]
     Dosage: UNK
     Route: 048
     Dates: start: 20090923
  5. EXJADE [Suspect]
     Dosage: 500 MG PER DAY
     Route: 048
  6. THYRAX [Concomitant]
     Dosage: 0.025 1DD2 TABS

REACTIONS (2)
  - HEAD DISCOMFORT [None]
  - VISUAL FIELD DEFECT [None]
